FAERS Safety Report 12865198 (Version 3)
Quarter: 2016Q4

REPORT INFORMATION
  Report Type: Spontaneous
  Country: JP (occurrence: JP)
  Receive Date: 20161020
  Receipt Date: 20161213
  Transmission Date: 20170207
  Serious: Yes (Death, Life-Threatening, Hospitalization, Disabling, Other)
  Sender: FDA-Public Use
  Company Number: JP-BRISTOL-MYERS SQUIBB COMPANY-BMS-2016-068987

PATIENT
  Age: 80 Year
  Sex: Female
  Weight: 52 kg

DRUGS (12)
  1. SUNRYTHM [Concomitant]
     Active Substance: PILSICAINIDE HYDROCHLORIDE
     Indication: ATRIAL FIBRILLATION
     Dosage: 50 MG, TID
     Route: 048
     Dates: start: 20160829
  2. SUNRYTHM [Concomitant]
     Active Substance: PILSICAINIDE HYDROCHLORIDE
     Indication: SINUS RHYTHM
     Route: 065
  3. ATORVASTATIN [Concomitant]
     Active Substance: ATORVASTATIN
     Indication: DYSLIPIDAEMIA
     Dosage: 10 MG, QD
     Route: 048
     Dates: start: 20160829
  4. SOLYUGEN G [Concomitant]
     Indication: SUPPLEMENTATION THERAPY
     Dosage: 500 ML, QD
     Route: 042
     Dates: start: 20160729, end: 20160730
  5. YD SOLITA T NO.3 [Concomitant]
     Indication: SUPPLEMENTATION THERAPY
     Dosage: 500 ML, QD
     Route: 042
     Dates: start: 20160729, end: 20160730
  6. SOLYUGEN F [Concomitant]
     Indication: SUPPLEMENTATION THERAPY
     Route: 065
  7. SULBACTAM SODIUM [Concomitant]
     Active Substance: SULBACTAM SODIUM
     Indication: CHOLANGITIS
     Dosage: 1 G, BID
     Route: 042
     Dates: start: 20160729, end: 20160802
  8. ELIQUIS [Suspect]
     Active Substance: APIXABAN
     Indication: PRODUCT USED FOR UNKNOWN INDICATION
     Dosage: 2.5 UNK, UNK
     Route: 048
     Dates: start: 20160730, end: 20160829
  9. VOLTAREN [Concomitant]
     Active Substance: DICLOFENAC SODIUM
     Indication: PANCREATITIS
     Dosage: UNK
     Route: 065
     Dates: start: 20160729
  10. ELIQUIS [Suspect]
     Active Substance: APIXABAN
     Indication: CEREBROVASCULAR ACCIDENT PROPHYLAXIS
     Dosage: 2.5 MG, BID
     Route: 048
     Dates: start: 20160503, end: 20160728
  11. MIRACLID [Concomitant]
     Active Substance: ULINASTATIN
     Indication: PANCREATITIS
     Dosage: 50000 IU, QD
     Route: 042
     Dates: start: 20160729
  12. WYSTAL [Concomitant]
     Active Substance: CEFOPERAZONE SODIUM\SULBACTAM SODIUM
     Indication: CHOLANGITIS
     Dosage: 1 G, BID
     Route: 042
     Dates: start: 20160729, end: 20160802

REACTIONS (8)
  - Biliary drainage [Unknown]
  - Tumour haemorrhage [Not Recovered/Not Resolved]
  - Anaemia [Not Recovered/Not Resolved]
  - Cholangitis acute [Fatal]
  - Bile duct cancer [Fatal]
  - Septic shock [Unknown]
  - Jaundice cholestatic [Unknown]
  - Embolic stroke [Recovered/Resolved with Sequelae]

NARRATIVE: CASE EVENT DATE: 201607
